FAERS Safety Report 26049080 (Version 1)
Quarter: 2025Q4

REPORT INFORMATION
  Report Type: Spontaneous
  Country: US (occurrence: US)
  Receive Date: 20251115
  Receipt Date: 20251115
  Transmission Date: 20260118
  Serious: No
  Sender: AMNEAL
  Company Number: US-AMNEAL PHARMACEUTICALS-2025-AMRX-01234

PATIENT
  Age: 57 Year
  Sex: Female
  Weight: 64.853 kg

DRUGS (1)
  1. ESTRADIOL TRANSDERMAL SYSTEM [Suspect]
     Active Substance: ESTRADIOL
     Indication: Menopause
     Dosage: 0.1 MG IN 1 DAY, 1 PATCH TWICE A WEEK
     Route: 062
     Dates: start: 202503

REACTIONS (3)
  - Application site irritation [Not Recovered/Not Resolved]
  - Product intolerance [Unknown]
  - Drug ineffective [Not Recovered/Not Resolved]

NARRATIVE: CASE EVENT DATE: 20250301
